FAERS Safety Report 9668080 (Version 1)
Quarter: 2013Q4

REPORT INFORMATION
  Report Type: Spontaneous
  Country: ES (occurrence: ES)
  Receive Date: 20131104
  Receipt Date: 20131104
  Transmission Date: 20140711
  Serious: Yes (Other)
  Sender: FDA-Public Use
  Company Number: PHHY2013ES120050

PATIENT
  Age: 66 Year
  Sex: Female

DRUGS (2)
  1. SIRDALUD [Suspect]
     Indication: MUSCLE DISORDER
     Dosage: UNK UKN, UNK
     Route: 048
     Dates: start: 20130930, end: 20131004
  2. IBUPROFEN SANDOZ [Suspect]
     Dosage: UNK UKN, UNK
     Dates: start: 20130930

REACTIONS (1)
  - Hypotension [Recovered/Resolved]
